FAERS Safety Report 7531561-1 (Version None)
Quarter: 2011Q2

REPORT INFORMATION
  Report Type: 
  Country: None (occurrence: None)
  Receive Date: 20110608
  Receipt Date: 20110530
  Transmission Date: 20111010
  Serious: Yes (Other)
  Sender: FDA-Public Use
  Company Number: CN-ASTRAZENECA-2011SE33087

PATIENT
  Age: 60 Year
  Sex: Female

DRUGS (3)
  1. BRICANYL [Concomitant]
  2. PULMICORT RESPULES [Suspect]
     Indication: ASTHMA
     Route: 055
  3. PULMICORT RESPULES [Suspect]
     Indication: BRONCHITIS CHRONIC
     Route: 055

REACTIONS (1)
  - WHEEZING [None]
